FAERS Safety Report 10479747 (Version 2)
Quarter: 2014Q3

REPORT INFORMATION
  Report Type: Report from Study
  Country: US (occurrence: US)
  Receive Date: 20140927
  Receipt Date: 20140927
  Transmission Date: 20150326
  Serious: Yes (Other)
  Sender: FDA-Public Use
  Company Number: US-ALEXION-A201203149

PATIENT
  Age: 76 Year
  Sex: Male

DRUGS (1)
  1. SOLIRIS [Suspect]
     Active Substance: ECULIZUMAB
     Indication: PAROXYSMAL NOCTURNAL HAEMOGLOBINURIA
     Dosage: UNK
     Route: 042
     Dates: end: 201302

REACTIONS (15)
  - Erectile dysfunction [Unknown]
  - Dyspnoea [Unknown]
  - Chromaturia [Unknown]
  - Fatigue [Recovering/Resolving]
  - Headache [Unknown]
  - Cough [Unknown]
  - Supraventricular tachycardia [Unknown]
  - Iron overload [Unknown]
  - Nasopharyngitis [Unknown]
  - Haemoglobin decreased [Not Recovered/Not Resolved]
  - Ear pain [Unknown]
  - Back pain [Unknown]
  - Atrial fibrillation [None]
  - Biopsy bone marrow [Unknown]
  - Anaemia [Unknown]

NARRATIVE: CASE EVENT DATE: 20120829
